FAERS Safety Report 10698185 (Version 1)
Quarter: 2014Q4

REPORT INFORMATION
  Report Type: Spontaneous
  Country: US (occurrence: None)
  Receive Date: 20141223
  Receipt Date: 20141223
  Transmission Date: 20150529
  Serious: No
  Sender: FDA-Public Use
  Company Number: 1000071102

PATIENT
  Age: 71 Year
  Sex: Female

DRUGS (1)
  1. LINZESS [Suspect]
     Active Substance: LINACLOTIDE
     Indication: NEUROGENIC BOWEL
     Dosage: 1 IN 1 D
     Route: 048
     Dates: start: 2014, end: 2014

REACTIONS (3)
  - Off label use [None]
  - Abdominal distension [None]
  - Headache [None]

NARRATIVE: CASE EVENT DATE: 2014
